FAERS Safety Report 8150662-0 (Version None)
Quarter: 2012Q1

REPORT INFORMATION
  Report Type: 
  Country: None (occurrence: None)
  Receive Date: 20120220
  Receipt Date: 20120207
  Transmission Date: 20120608
  Serious: Yes (Hospitalization)
  Sender: FDA-Public Use
  Company Number: PHHY2011DE96850

PATIENT
  Sex: Male
  Weight: 60 kg

DRUGS (8)
  1. NORVASC [Concomitant]
     Indication: HYPERTENSION
     Dosage: 5 MG, DAILY
  2. ALLOPURINOL [Concomitant]
     Indication: HYPERURICAEMIA
     Dosage: 150 MG, QD
  3. FOLIC ACID [Concomitant]
     Indication: FOLATE DEFICIENCY
  4. FORMOTEROL FUMARATE [Concomitant]
     Indication: ASTHMA
     Dosage: 12 UG, BID
  5. TASIGNA [Suspect]
     Indication: NEOPLASM
     Dosage: 400 MG, BID
     Route: 048
     Dates: start: 20100201
  6. PANTOPRAZOLE [Concomitant]
     Indication: ABDOMINAL DISCOMFORT
     Dosage: 20 MG, ONCE DAILY
  7. LISINOPRIL [Concomitant]
     Indication: HYPERTENSION
     Dosage: 5 MG,ONCE DAILY
  8. FUROSEMIDE [Concomitant]
     Indication: POLYURIA
     Dosage: 40 MG (1/2 IN MORNING)

REACTIONS (2)
  - BRONCHOPULMONARY DISEASE [None]
  - DYSPNOEA [None]
